FAERS Safety Report 6708541-9 (Version None)
Quarter: 2010Q2

REPORT INFORMATION
  Report Type: 
  Country: None (occurrence: None)
  Receive Date: 20100503
  Receipt Date: 20090608
  Transmission Date: 20101027
  Serious: No
  Sender: FDA-Public Use
  Company Number: US-ASTRAZENECA-2009UW14698

PATIENT
  Sex: Male
  Weight: 79.4 kg

DRUGS (4)
  1. NEXIUM [Suspect]
     Indication: GASTROOESOPHAGEAL REFLUX DISEASE
     Route: 048
     Dates: start: 20090201
  2. NEXIUM [Suspect]
     Route: 048
  3. ALTACE [Concomitant]
  4. PAXIL [Concomitant]

REACTIONS (1)
  - GASTROOESOPHAGEAL REFLUX DISEASE [None]
